FAERS Safety Report 12784372 (Version 1)
Quarter: 2016Q3

REPORT INFORMATION
  Report Type: Spontaneous
  Country: JP (occurrence: JP)
  Receive Date: 20160927
  Receipt Date: 20160927
  Transmission Date: 20161109
  Serious: Yes (Other)
  Sender: FDA-Public Use
  Company Number: JP-BEH-200914764

PATIENT
  Age: 76 Year
  Sex: Female

DRUGS (6)
  1. RENIVACE [Concomitant]
     Active Substance: ENALAPRIL
     Dosage: DAILY DOSE QUANTITY: .5, DAILY DOSE UNIT: U
     Route: 048
  2. POSTERISAN [Concomitant]
     Active Substance: LIDOCAINE
     Dates: start: 200709
  3. MARZULENE-S [Concomitant]
     Active Substance: SODIUM GUALENATE
     Dosage: DAILY DOSE QUANTITY: 4.5, DAILY DOSE UNIT: G
     Route: 048
     Dates: start: 20080813
  4. MAGNESIUM OXIDE. [Concomitant]
     Active Substance: MAGNESIUM OXIDE
     Dosage: DAILY DOSE QUANTITY: 1.5, DAILY DOSE UNIT: G
     Route: 048
     Dates: start: 200408
  5. SANGLOPOR [Suspect]
     Active Substance: HUMAN IMMUNOGLOBULIN G
     Indication: HYPOGAMMAGLOBULINAEMIA
     Dosage: DAILY DOSE QUANTITY: 2.5, DAILY DOSE UNIT: G
     Route: 042
     Dates: start: 20090309, end: 20090309
  6. AMOBAN [Concomitant]
     Active Substance: ZOPICLONE
     Dosage: DAILY DOSE QUANTITY: 1, DAILY DOSE UNIT: U
     Route: 048

REACTIONS (3)
  - Dyspnoea [Recovered/Resolved]
  - Chills [Recovered/Resolved]
  - Anaphylactic reaction [Recovered/Resolved]

NARRATIVE: CASE EVENT DATE: 20090309
